FAERS Safety Report 9871178 (Version 2)
Quarter: 2014Q1

REPORT INFORMATION
  Report Type: Spontaneous
  Country: US (occurrence: US)
  Receive Date: 20140205
  Receipt Date: 20140225
  Transmission Date: 20141002
  Serious: No
  Sender: FDA-Public Use
  Company Number: US-B.I. PHARMACEUTICALS,INC./RIDGEFIELD-2014-BI-04204BP

PATIENT
  Sex: Male
  Weight: 70 kg

DRUGS (3)
  1. SPIRIVA [Suspect]
     Indication: CHRONIC OBSTRUCTIVE PULMONARY DISEASE
     Dosage: 72 MCG
     Route: 055
     Dates: start: 2013, end: 2013
  2. SPIRIVA [Suspect]
     Dosage: 36 MCG
     Route: 055
     Dates: start: 2013
  3. SPIRIVA [Suspect]
     Dosage: 72 MCG
     Route: 055
     Dates: start: 2013, end: 2013

REACTIONS (3)
  - Prescribed overdose [Recovered/Resolved]
  - Prescribed overdose [Not Recovered/Not Resolved]
  - Inappropriate schedule of drug administration [Recovered/Resolved]
